FAERS Safety Report 7204373-6 (Version None)
Quarter: 2010Q4

REPORT INFORMATION
  Report Type: 
  Country: None (occurrence: None)
  Receive Date: 20101230
  Receipt Date: 20101221
  Transmission Date: 20110411
  Serious: Yes (Life-Threatening, Hospitalization, Other)
  Sender: FDA-Public Use
  Company Number: SE-JNJFOC-20101003717

PATIENT
  Age: 20 Year
  Sex: Male

DRUGS (7)
  1. REMICADE [Suspect]
     Indication: COLITIS ULCERATIVE
     Route: 042
  2. REMICADE [Suspect]
     Indication: CROHN'S DISEASE
     Route: 042
  3. PURINETHOL [Concomitant]
     Indication: COLITIS ULCERATIVE
     Route: 048
  4. STEROIDS NOS [Concomitant]
  5. AZATHIOPRINE [Concomitant]
  6. ASACOL [Concomitant]
  7. PREDNISOLONE [Concomitant]
     Indication: COLITIS ULCERATIVE
     Route: 048

REACTIONS (1)
  - PNEUMONIA [None]
